FAERS Safety Report 4513024-0 (Version None)
Quarter: 2004Q4

REPORT INFORMATION
  Report Type: 
  Country: None (occurrence: None)
  Receive Date: 20041124
  Receipt Date: 20041115
  Transmission Date: 20050328
  Serious: No
  Sender: FDA-Public Use
  Company Number: 210461

PATIENT
  Sex: Male

DRUGS (1)
  1. AVASTIN [Suspect]
     Dosage: INTRAVENOUS
     Route: 042

REACTIONS (6)
  - DEVICE FAILURE [None]
  - EXTRAVASATION [None]
  - IATROGENIC INJURY [None]
  - IMPLANT SITE REACTION [None]
  - PLEURAL EFFUSION [None]
  - RALES [None]
